FAERS Safety Report 22085507 (Version 1)
Quarter: 2023Q1

REPORT INFORMATION
  Report Type: Spontaneous
  Country: GB (occurrence: GB)
  Receive Date: 20230310
  Receipt Date: 20230310
  Transmission Date: 20230417
  Serious: Yes (Other)
  Sender: FDA-Public Use
  Company Number: None

PATIENT
  Age: 65 Year
  Sex: Male
  Weight: 70 kg

DRUGS (17)
  1. ATEZOLIZUMAB [Suspect]
     Active Substance: ATEZOLIZUMAB
     Indication: Product used for unknown indication
     Route: 065
     Dates: start: 20230220
  2. AMOXICILLIN [Concomitant]
     Active Substance: AMOXICILLIN
     Dates: start: 20221228, end: 20230126
  3. BETAMETHASONE VALERATE [Concomitant]
     Active Substance: BETAMETHASONE VALERATE
     Dosage: APPLY
     Dates: start: 20230110, end: 20230209
  4. BUPRENORPHINE [Concomitant]
     Active Substance: BUPRENORPHINE
     Dates: start: 20230220
  5. CETRABEN EMOLLIENT [Concomitant]
     Dosage: APPLY WHEN REQUIRED
     Dates: start: 20230110, end: 20230209
  6. COCODAMOL [Concomitant]
     Active Substance: ACETAMINOPHEN\CODEINE PHOSPHATE
     Dosage: ONE OR TWO TO BE TAKEN FOUR TIMES A DAY WHEN REQUIRED
     Dates: start: 20230203, end: 20230204
  7. CYCLIZINE [Concomitant]
     Active Substance: CYCLIZINE
     Dosage: AS DIRECTED
     Dates: start: 20230220, end: 20230221
  8. DEXAMETHASONE [Concomitant]
     Active Substance: DEXAMETHASONE
     Dates: start: 20230220
  9. FEXOFENADINE [Concomitant]
     Active Substance: FEXOFENADINE HYDROCHLORIDE
     Dates: start: 20221213, end: 20230127
  10. GLYCOPYRROLATE [Concomitant]
     Active Substance: GLYCOPYRROLATE
     Dosage: USE AS DIRECTED
     Dates: start: 20230220
  11. LANSOPRAZOLE [Concomitant]
     Active Substance: LANSOPRAZOLE
     Dates: start: 20220812
  12. MIDAZOLAM [Concomitant]
     Active Substance: MIDAZOLAM
     Dosage: USE AS DIRECTED
     Dates: start: 20230220
  13. MORPHINE SULFATE [Concomitant]
     Active Substance: MORPHINE SULFATE
     Dosage: USE AS DIRECTED
     Dates: start: 20230220
  14. NYSTATIN [Concomitant]
     Active Substance: NYSTATIN
     Dosage: TO BE DROPPED INTO THE MOUTH
     Dates: start: 20221213, end: 20230111
  15. PREGABALIN [Concomitant]
     Active Substance: PREGABALIN
     Dates: start: 20230220
  16. TRANEXAMIC ACID [Concomitant]
     Active Substance: TRANEXAMIC ACID
     Dates: start: 20221011, end: 20230209
  17. WATER FOR INJECTION [Concomitant]
     Active Substance: WATER
     Dosage: USE AS DIRECTED
     Dates: start: 20230220

REACTIONS (1)
  - Oral pain [Unknown]
